FAERS Safety Report 4490127-0 (Version None)
Quarter: 2004Q4

REPORT INFORMATION
  Report Type: 
  Country: None (occurrence: None)
  Receive Date: 20041028
  Receipt Date: 20041015
  Transmission Date: 20050328
  Serious: Yes (Hospitalization)
  Sender: FDA-Public Use
  Company Number: HQWYE895519OCT04

PATIENT
  Age: 41 Year
  Sex: Female
  Weight: 59.93 kg

DRUGS (1)
  1. EFFEXOR XR [Suspect]
     Indication: DEPRESSION
     Dosage: 150 MG 1X PER 1 DAY, ORAL
     Route: 048
     Dates: start: 20020101

REACTIONS (7)
  - ABDOMINAL PAIN [None]
  - COLONOSCOPY ABNORMAL [None]
  - CONSTIPATION [None]
  - GASTROINTESTINAL DISORDER [None]
  - MUSCLE SPASMS [None]
  - NAUSEA [None]
  - VOMITING [None]
